FAERS Safety Report 19168678 (Version 2)
Quarter: 2022Q2

REPORT INFORMATION
  Report Type: Other
  Country: US (occurrence: None)
  Receive Date: 20210422
  Receipt Date: 20220510
  Transmission Date: 20220721
  Serious: Yes (Other)
  Sender: FDA-Public Use
  Company Number: US-ROCHE-2792015

PATIENT
  Age: 60 Year
  Sex: Female
  Weight: 79.450 kg

DRUGS (11)
  1. OCREVUS [Suspect]
     Active Substance: OCRELIZUMAB
     Indication: Relapsing-remitting multiple sclerosis
     Route: 042
     Dates: start: 201910
  2. OCREVUS [Suspect]
     Active Substance: OCRELIZUMAB
     Indication: Multiple sclerosis
     Route: 065
     Dates: start: 20210507
  3. SYMBICORT [Concomitant]
     Active Substance: BUDESONIDE\FORMOTEROL FUMARATE DIHYDRATE
     Indication: Asthma
     Dosage: STARTED A LONG TIME AGO 2 PUFFS IN AM AND PM
     Route: 055
  4. MAXIDEX [Concomitant]
     Active Substance: DEXAMETHASONE
     Indication: Hypertension
     Dosage: 1 PILL PER DAY, 37.5 MG UNKNOWN MEDICATION/ 25 MG OF UNKNOWN WATER PILL
     Dates: start: 2018
  5. ARMODAFINIL [Concomitant]
     Active Substance: ARMODAFINIL
     Indication: Fatigue
     Dosage: STARTED MAYBE 2004
     Route: 048
  6. BACLOFEN [Concomitant]
     Active Substance: BACLOFEN
     Indication: Musculoskeletal stiffness
     Dosage: AT NIGHT AS NEEDED STARTED 2019 AFTER OCREVUS
     Route: 048
     Dates: start: 2019
  7. VITAMIN B COMPLEX [Concomitant]
     Active Substance: CYANOCOBALAMIN\DEXPANTHENOL\NIACINAMIDE\PYRIDOXINE HYDROCHLORIDE\RIBOFLAVIN 5^-PHOSPHATE SODIUM\THIA
     Indication: Asthenia
     Dosage: STARTED OFF AND ON 4 TO 5 YEARS AGO TAKES 1 TABLET
     Route: 048
  8. VITAMIN D3 [Concomitant]
     Active Substance: CHOLECALCIFEROL
     Dosage: STARTED A WHILE AGO
     Route: 048
  9. CALCIUM [Concomitant]
     Active Substance: CALCIUM
     Indication: Multiple sclerosis
     Dosage: 600 CALCIUM MG AND MAYBE 250 MG OF MAGNESIUM AND UNKNOWN AMOUNT OF VITAMIN D
     Route: 048
  10. MEGARED [Concomitant]
     Indication: Blood pressure measurement
     Dosage: 1CAPSULE IN AM + PMSTARTED WITH HIGH BLOOD PRESSUR
     Route: 048
  11. SPIRIVA [Concomitant]
     Active Substance: TIOTROPIUM BROMIDE MONOHYDRATE

REACTIONS (12)
  - Urinary tract infection [Recovered/Resolved]
  - Pain in extremity [Not Recovered/Not Resolved]
  - Hypoaesthesia [Not Recovered/Not Resolved]
  - Paraesthesia [Not Recovered/Not Resolved]
  - Grip strength decreased [Not Recovered/Not Resolved]
  - Fatigue [Not Recovered/Not Resolved]
  - Blood triglycerides increased [Not Recovered/Not Resolved]
  - Limb discomfort [Not Recovered/Not Resolved]
  - Aphasia [Unknown]
  - Gait disturbance [Unknown]
  - Lip disorder [Unknown]
  - Muscle twitching [Unknown]

NARRATIVE: CASE EVENT DATE: 20210201
